FAERS Safety Report 8887017 (Version 1)
Quarter: 2012Q4

REPORT INFORMATION
  Report Type: Report from Study
  Country: US (occurrence: US)
  Receive Date: 20121105
  Receipt Date: 20121105
  Transmission Date: 20130627
  Serious: Yes (Other)
  Sender: FDA-Public Use
  Company Number: US-ROCHE-1144623

PATIENT
  Age: 56 Year
  Sex: Male
  Weight: 106 kg

DRUGS (17)
  1. BEVACIZUMAB [Suspect]
     Indication: GLIOBLASTOMA
     Route: 042
     Dates: start: 20120822
  2. FLOMAX [Concomitant]
     Route: 048
  3. FAMOTIDINE [Concomitant]
     Route: 065
  4. BUSPAR [Concomitant]
     Route: 048
  5. OMEPRAZOLE [Concomitant]
     Route: 048
  6. DILANTIN [Concomitant]
     Route: 048
  7. ALPRAZOLAM [Concomitant]
     Dosage: 1 MG AT HS
     Route: 065
  8. HYDROMORPHONE [Concomitant]
     Indication: PAIN
     Route: 065
  9. SERTRALINE [Concomitant]
     Route: 065
  10. BACTRIM DS [Concomitant]
     Dosage: MNDAY, WEDNESDAY, FRIDAY
     Route: 048
  11. SENOKOT [Concomitant]
     Route: 048
  12. PREDNISOLONE [Concomitant]
     Dosage: EYE DROPS
     Route: 065
  13. CALCIUM CARBONATE [Concomitant]
     Indication: GASTROOESOPHAGEAL REFLUX DISEASE
     Route: 065
  14. PROCHLORPERAZINE [Concomitant]
     Indication: NAUSEA
     Route: 065
  15. ZOFRAN [Concomitant]
     Indication: NAUSEA
     Route: 065
  16. VALPROIC ACID [Concomitant]
     Route: 065
  17. WARFARIN [Concomitant]

REACTIONS (2)
  - Ammonia increased [Recovered/Resolved]
  - Bone density decreased [Not Recovered/Not Resolved]
